FAERS Safety Report 8784242 (Version 1)
Quarter: 2012Q4

REPORT INFORMATION
  Report Type: Spontaneous
  Country: US (occurrence: None)
  Receive Date: 20120905
  Receipt Date: 20120905
  Transmission Date: 20130627
  Serious: No
  Sender: FDA-Public Use
  Company Number: None

PATIENT
  Age: 24 Year
  Sex: Female
  Weight: 52.62 kg

DRUGS (1)
  1. MIRENA IUD [Suspect]

REACTIONS (4)
  - Weight increased [None]
  - Anxiety [None]
  - Fatigue [None]
  - Loss of libido [None]
